FAERS Safety Report 7389303-9 (Version None)
Quarter: 2011Q2

REPORT INFORMATION
  Report Type: 
  Country: None (occurrence: None)
  Receive Date: 20110401
  Receipt Date: 20110322
  Transmission Date: 20111010
  Serious: Yes (Hospitalization)
  Sender: FDA-Public Use
  Company Number: A0886386A

PATIENT
  Age: 49 Year
  Sex: Male

DRUGS (2)
  1. AVANDIA [Suspect]
     Dosage: 8MG PER DAY
     Route: 048
     Dates: start: 20020101, end: 20090101
  2. AVANDAMET [Suspect]
     Route: 065
     Dates: start: 20051103, end: 20051208

REACTIONS (10)
  - ANGINA UNSTABLE [None]
  - CORONARY ARTERY DISEASE [None]
  - CHEST PAIN [None]
  - ANGIOPLASTY [None]
  - CATHETER PLACEMENT [None]
  - ACUTE CORONARY SYNDROME [None]
  - PAIN [None]
  - DYSPNOEA [None]
  - PAIN IN EXTREMITY [None]
  - CORONARY ARTERIAL STENT INSERTION [None]
